FAERS Safety Report 8230336-8 (Version None)
Quarter: 2012Q1

REPORT INFORMATION
  Report Type: 
  Country: None (occurrence: None)
  Receive Date: 20120320
  Receipt Date: 20120305
  Transmission Date: 20120608
  Serious: Yes (Other)
  Sender: FDA-Public Use
  Company Number: JPI-P-013753

PATIENT
  Age: 41 Year
  Sex: Female
  Weight: 52.1637 kg

DRUGS (5)
  1. XYREM [Suspect]
     Indication: SOMNOLENCE
     Dosage: 4.5 GM (2.25 GM, 2 IN 1 D), ORAL 6 GM (3 GM, 2 IN 1 D), ORAL
     Route: 048
     Dates: start: 20110106, end: 20110123
  2. XYREM [Suspect]
     Indication: NARCOLEPSY
     Dosage: 4.5 GM (2.25 GM, 2 IN 1 D), ORAL 6 GM (3 GM, 2 IN 1 D), ORAL
     Route: 048
     Dates: start: 20110106, end: 20110123
  3. XYREM [Suspect]
     Indication: SOMNOLENCE
     Dosage: 4.5 GM (2.25 GM, 2 IN 1 D), ORAL 6 GM (3 GM, 2 IN 1 D), ORAL
     Route: 048
     Dates: start: 20110124, end: 20110128
  4. XYREM [Suspect]
     Indication: NARCOLEPSY
     Dosage: 4.5 GM (2.25 GM, 2 IN 1 D), ORAL 6 GM (3 GM, 2 IN 1 D), ORAL
     Route: 048
     Dates: start: 20110124, end: 20110128
  5. ARMODAFINIL [Concomitant]

REACTIONS (14)
  - DIZZINESS [None]
  - DISTURBANCE IN ATTENTION [None]
  - ASTHENIA [None]
  - HYPERACUSIS [None]
  - ANXIETY [None]
  - HYPOAESTHESIA ORAL [None]
  - PERIPHERAL COLDNESS [None]
  - MYOPIA [None]
  - DECREASED APPETITE [None]
  - CONVULSION [None]
  - HYPOAESTHESIA [None]
  - TREMOR [None]
  - FEELING ABNORMAL [None]
  - DEPRESSION [None]
